FAERS Safety Report 7808228-5 (Version None)
Quarter: 2011Q4

REPORT INFORMATION
  Report Type: 
  Country: None (occurrence: None)
  Receive Date: 20111011
  Receipt Date: 20111004
  Transmission Date: 20120403
  Serious: Yes (Hospitalization, Other)
  Sender: FDA-Public Use
  Company Number: US-BRISTOL-MYERS SQUIBB COMPANY-14252944

PATIENT
  Age: 71 Year
  Sex: Male
  Weight: 61 kg

DRUGS (9)
  1. DIFLUCAN [Concomitant]
  2. DOXYCYCLINE [Concomitant]
  3. DURAGESIC-100 [Concomitant]
  4. ZETIA [Concomitant]
  5. ERBITUX [Suspect]
     Indication: LARYNGEAL CANCER
     Dosage: INITIATED:21MAY08.
     Dates: start: 20080701, end: 20080701
  6. CISPLATIN [Suspect]
     Indication: LARYNGEAL CANCER
     Dates: start: 20080618, end: 20080618
  7. ATENOLOL [Concomitant]
  8. PRILOSEC [Concomitant]
  9. INSULIN [Concomitant]

REACTIONS (5)
  - DEHYDRATION [None]
  - HYPONATRAEMIA [None]
  - DEEP VEIN THROMBOSIS [None]
  - DYSPHAGIA [None]
  - LYMPHOCYTE COUNT DECREASED [None]
